FAERS Safety Report 21963721 (Version 1)
Quarter: 2023Q1

REPORT INFORMATION
  Report Type: Other
  Country: None (occurrence: US)
  Receive Date: 20230207
  Receipt Date: 20230207
  Transmission Date: 20230418
  Serious: Yes (Hospitalization)
  Sender: FDA-Public Use
  Company Number: US-B.Braun Medical Inc.-2137627

PATIENT
  Age: 44 Year
  Sex: Female

DRUGS (1)
  1. DEXTROSE [Suspect]
     Active Substance: DEXTROSE
     Indication: Hypoglycaemia
     Route: 042

REACTIONS (1)
  - Drug ineffective [Unknown]
